FAERS Safety Report 10229801 (Version 1)
Quarter: 2014Q2

REPORT INFORMATION
  Report Type: Report from Study
  Country: US (occurrence: US)
  Receive Date: 20140611
  Receipt Date: 20140611
  Transmission Date: 20141212
  Serious: Yes (Hospitalization)
  Sender: FDA-Public Use
  Company Number: US-NAPPMUNDI-USA-2014-0114723

PATIENT
  Sex: Female

DRUGS (2)
  1. OXY CR TAB [Suspect]
     Indication: ARTHRITIS
     Dosage: 2 20 MG OXYCONTIN
     Dates: start: 20030703
  2. OXY CR TAB [Suspect]
     Indication: UNEVALUABLE EVENT
     Dosage: 40 MG, TID
     Route: 048

REACTIONS (5)
  - Burns third degree [Unknown]
  - Seasonal allergy [Not Recovered/Not Resolved]
  - Nasopharyngitis [Unknown]
  - Malaise [Unknown]
  - Drug effect decreased [Not Recovered/Not Resolved]
